FAERS Safety Report 6639252-6 (Version None)
Quarter: 2010Q1

REPORT INFORMATION
  Report Type: 
  Country: None (occurrence: None)
  Receive Date: 20100315
  Receipt Date: 20100225
  Transmission Date: 20100710
  Serious: Yes (Death)
  Sender: FDA-Public Use
  Company Number: 2010VX000096

PATIENT
  Age: 66 Year
  Sex: Female

DRUGS (9)
  1. LIBRAX [Suspect]
     Indication: DRUG USE FOR UNKNOWN INDICATION
  2. OXYCODONE HCL [Suspect]
     Indication: DRUG USE FOR UNKNOWN INDICATION
  3. BENZODIAZEPINE [Suspect]
     Indication: DRUG USE FOR UNKNOWN INDICATION
  4. ETHANOL [Suspect]
     Indication: DRUG USE FOR UNKNOWN INDICATION
  5. ACETAMINOPHEN [Suspect]
     Indication: DRUG USE FOR UNKNOWN INDICATION
  6. SALICYLATE [Suspect]
     Indication: DRUG USE FOR UNKNOWN INDICATION
  7. BENZONATATE [Suspect]
     Indication: DRUG USE FOR UNKNOWN INDICATION
  8. CHLOROTHIAZIDE [Suspect]
     Indication: DRUG USE FOR UNKNOWN INDICATION
  9. DRUG UNKNOWN [Suspect]
     Indication: DRUG USE FOR UNKNOWN INDICATION

REACTIONS (2)
  - DRUG TOXICITY [None]
  - POISONING [None]
